FAERS Safety Report 5594732-X (Version None)
Quarter: 2008Q1

REPORT INFORMATION
  Report Type: 
  Country: None (occurrence: None)
  Receive Date: 20080117
  Receipt Date: 20080116
  Transmission Date: 20080703
  Serious: Yes (Other)
  Sender: FDA-Public Use
  Company Number: A0703457A

PATIENT
  Age: 50 Year
  Sex: Female
  Weight: 102.3 kg

DRUGS (2)
  1. ALLI [Suspect]
     Route: 048
     Dates: start: 20080110, end: 20080114
  2. TRIAMTERENE [Concomitant]

REACTIONS (3)
  - ANAL HAEMORRHAGE [None]
  - ANXIETY [None]
  - RECTAL HAEMORRHAGE [None]
